FAERS Safety Report 15756117 (Version 2)
Quarter: 2019Q1

REPORT INFORMATION
  Report Type: Report from Study
  Country: CA (occurrence: CA)
  Receive Date: 20181224
  Receipt Date: 20190211
  Transmission Date: 20190417
  Serious: Yes (Death, Hospitalization)
  Sender: FDA-Public Use
  Company Number: PHHY2017CA192277

PATIENT
  Age: 55 Year
  Sex: Female

DRUGS (5)
  1. SANDOSTATIN [Suspect]
     Active Substance: OCTREOTIDE ACETATE
     Dosage: UNK, BID
     Route: 058
     Dates: start: 20171119, end: 20171121
  2. SANDOSTATIN LAR DEPOT [Suspect]
     Active Substance: OCTREOTIDE ACETATE
     Indication: CARCINOID TUMOUR
     Dosage: 30 MG, QMO (EVERY 4 WEEKS)
     Route: 030
     Dates: start: 20171215
  3. SANDOSTATIN [Suspect]
     Active Substance: OCTREOTIDE ACETATE
     Dosage: UNK, TID
     Route: 058
     Dates: start: 20171122, end: 20171210
  4. SANDOSTATIN LAR DEPOT [Suspect]
     Active Substance: OCTREOTIDE ACETATE
     Dosage: 30 MG, QMO (EVERY 4 WEEKS)
     Route: 030
     Dates: start: 20181204
  5. SANDOSTATIN [Suspect]
     Active Substance: OCTREOTIDE ACETATE
     Indication: CARCINOID TUMOUR
     Dosage: UNK UNK, QD
     Route: 058
     Dates: start: 20171116, end: 20171118

REACTIONS (8)
  - Carcinoid tumour [Fatal]
  - Confusional state [Unknown]
  - Pneumonia [Not Recovered/Not Resolved]
  - Blood pressure systolic increased [Unknown]
  - Nausea [Unknown]
  - Feeding disorder [Unknown]
  - Malignant neoplasm progression [Fatal]
  - Malaise [Unknown]

NARRATIVE: CASE EVENT DATE: 201712
